FAERS Safety Report 8883331 (Version 1)
Quarter: 2012Q4

REPORT INFORMATION
  Report Type: 
  Country: FR (occurrence: FR)
  Receive Date: 20121102
  Receipt Date: 20121102
  Transmission Date: 20130627
  Serious: Yes (Other)
  Sender: FDA-Public Use
  Company Number: FR-VALEANT-2012VX004857

PATIENT
  Age: 80 Year
  Sex: Female

DRUGS (1)
  1. EFUDIX [Suspect]
     Indication: ACTINIC KERATOSIS
     Route: 061
     Dates: start: 2012, end: 20121022

REACTIONS (3)
  - Deformity [Recovering/Resolving]
  - Application site necrosis [Recovering/Resolving]
  - Application site burn [Recovering/Resolving]
